FAERS Safety Report 15458070 (Version 1)
Quarter: 2018Q4

REPORT INFORMATION
  Report Type: Report from Study
  Country: CN (occurrence: CN)
  Receive Date: 20181003
  Receipt Date: 20181003
  Transmission Date: 20190204
  Serious: Yes (Other)
  Sender: FDA-Public Use
  Company Number: CN-ROCHE-2192554

PATIENT

DRUGS (2)
  1. OXALIPLATIN. [Suspect]
     Active Substance: OXALIPLATIN
     Indication: GASTRIC CANCER
     Dosage: ON DAY 1
     Route: 042
  2. CAPECITABINE. [Suspect]
     Active Substance: CAPECITABINE
     Indication: GASTRIC CANCER
     Dosage: FROM DAY 1 TO 14
     Route: 048

REACTIONS (5)
  - Leukopenia [Unknown]
  - Neurotoxicity [Unknown]
  - Hypersensitivity [Unknown]
  - Thrombocytopenia [Unknown]
  - Haemoglobin decreased [Unknown]
